FAERS Safety Report 17272667 (Version 6)
Quarter: 2020Q4

REPORT INFORMATION
  Report Type: Spontaneous
  Country: US (occurrence: US)
  Receive Date: 20200115
  Receipt Date: 20201027
  Transmission Date: 20210113
  Serious: No
  Sender: FDA-Public Use
  Company Number: US-PFIZER INC-2020019153

PATIENT
  Age: 88 Year
  Sex: Female
  Weight: 56 kg

DRUGS (3)
  1. LYRICA [Suspect]
     Active Substance: PREGABALIN
     Indication: PAIN IN EXTREMITY
  2. LYRICA [Suspect]
     Active Substance: PREGABALIN
     Indication: BONE PAIN
     Dosage: 75 MG, 2X/DAY
     Dates: end: 201912
  3. LYRICA [Suspect]
     Active Substance: PREGABALIN
     Indication: BURNING SENSATION

REACTIONS (6)
  - Body height decreased [Unknown]
  - Headache [Unknown]
  - Vision blurred [Unknown]
  - Expired product administered [Unknown]
  - Intentional product misuse [Unknown]
  - Musculoskeletal stiffness [Not Recovered/Not Resolved]

NARRATIVE: CASE EVENT DATE: 202001
